FAERS Safety Report 9715656 (Version 2)
Quarter: 2014Q1

REPORT INFORMATION
  Report Type: Other
  Country: US (occurrence: US)
  Receive Date: 20131127
  Receipt Date: 20140115
  Transmission Date: 20141002
  Serious: Yes (Hospitalization)
  Sender: FDA-Public Use
  Company Number: US-SHIRE-ALL1-2013-08107

PATIENT
  Age: 74 Year
  Sex: Female

DRUGS (8)
  1. FIRAZYR [Suspect]
     Indication: HEREDITARY ANGIOEDEMA
     Dosage: 30 MG, AS REQ^D
     Route: 058
  2. DANAZOL [Concomitant]
     Indication: HEREDITARY ANGIOEDEMA
     Dosage: 300 MG, 1X/DAY:QD
     Route: 065
     Dates: start: 201311
  3. DANAZOL [Concomitant]
     Dosage: 100 MG, 1X/DAY:QD
     Route: 048
     Dates: start: 2005
  4. ASPIRIN [Concomitant]
     Indication: CORONARY ARTERY DISEASE
     Dosage: 81 MG, 1X/DAY:QD
     Route: 048
     Dates: start: 201202
  5. NORVASC [Concomitant]
     Indication: HYPERTENSION
     Dosage: 10 MG, 1X/DAY:QD
     Route: 048
     Dates: start: 201202
  6. METOPROLOL [Concomitant]
     Indication: CORONARY ARTERY DISEASE
     Dosage: 25 MG, 1X/DAY:QD
     Route: 048
     Dates: start: 201202
  7. ROSUVASTATIN CALCIUM [Concomitant]
     Indication: HYPERLIPIDAEMIA
     Dosage: 40 MG, 1X/DAY:QD
     Route: 048
  8. COLONAID [Concomitant]
     Indication: PRODUCT USED FOR UNKNOWN INDICATION
     Dosage: UNK, 1X/DAY:QD
     Route: 048

REACTIONS (3)
  - Hypokalaemia [Unknown]
  - Accelerated hypertension [Unknown]
  - Treatment failure [Recovered/Resolved]
